FAERS Safety Report 7894708-3 (Version None)
Quarter: 2011Q4

REPORT INFORMATION
  Report Type: 
  Country: None (occurrence: None)
  Receive Date: 20111102
  Receipt Date: 20111020
  Transmission Date: 20120403
  Serious: Yes (Disabling)
  Sender: FDA-Public Use
  Company Number: 2011AP002003

PATIENT
  Age: 47 Year
  Sex: Female

DRUGS (2)
  1. TERBINAFINE HCL [Suspect]
     Indication: ONYCHOMYCOSIS
     Dosage: 250 MG, PO, QD
     Route: 048
     Dates: start: 20110728, end: 20110817
  2. LORATADINE [Concomitant]

REACTIONS (9)
  - BLOOD SODIUM DECREASED [None]
  - POLYDIPSIA [None]
  - PARAESTHESIA [None]
  - HYPOAESTHESIA [None]
  - ADRENAL SUPPRESSION [None]
  - VISION BLURRED [None]
  - HYPERAESTHESIA [None]
  - MALAISE [None]
  - HEADACHE [None]
